FAERS Safety Report 9912132 (Version 1)
Quarter: 2014Q1

REPORT INFORMATION
  Report Type: Report from Study
  Country: US (occurrence: US)
  Receive Date: 20140219
  Receipt Date: 20140219
  Transmission Date: 20141002
  Serious: Yes (Other)
  Sender: FDA-Public Use
  Company Number: US-ROCHE-1350537

PATIENT
  Age: 85 Year
  Sex: Female

DRUGS (3)
  1. AVASTIN [Suspect]
     Indication: AGE-RELATED MACULAR DEGENERATION
     Route: 050
  2. LUCENTIS [Suspect]
     Indication: AGE-RELATED MACULAR DEGENERATION
     Route: 050
  3. ABX [Concomitant]
     Route: 065
     Dates: start: 20110511

REACTIONS (10)
  - Punctate keratitis [Unknown]
  - Eye inflammation [Unknown]
  - Cataract [Unknown]
  - Visual acuity reduced [Unknown]
  - Vision blurred [Unknown]
  - Detachment of retinal pigment epithelium [Unknown]
  - Vitreous detachment [Unknown]
  - Metamorphopsia [Unknown]
  - Retinal haemorrhage [Unknown]
  - Off label use [Unknown]
